FAERS Safety Report 4932185-2 (Version None)
Quarter: 2006Q1

REPORT INFORMATION
  Report Type: 
  Country: None (occurrence: None)
  Receive Date: 20060228
  Receipt Date: 20060203
  Transmission Date: 20060701
  Serious: Yes (Other)
  Sender: FDA-Public Use
  Company Number: USA050496345

PATIENT
  Age: 58 Year
  Sex: Female
  Weight: 102.3 kg

DRUGS (9)
  1. CYMBALTA [Suspect]
     Indication: DEPRESSION
     Dosage: 60 MG, DAILY (1/D),
     Dates: start: 20041108, end: 20050415
  2. AMBIEN [Concomitant]
  3. MOBIC [Concomitant]
  4. SKELAXIN [Concomitant]
  5. ULTRACET [Concomitant]
  6. VICODIN [Concomitant]
  7. PAXIL CR [Concomitant]
  8. BEXTRA [Concomitant]
  9. DARVOCET-N 100 [Concomitant]

REACTIONS (9)
  - ABDOMINAL PAIN [None]
  - ALANINE AMINOTRANSFERASE INCREASED [None]
  - ASPARTATE AMINOTRANSFERASE INCREASED [None]
  - BLOOD ALBUMIN INCREASED [None]
  - BLOOD ALKALINE PHOSPHATASE INCREASED [None]
  - BLOOD GLUCOSE INCREASED [None]
  - BLOOD IRON DECREASED [None]
  - HAEMOGLOBIN DECREASED [None]
  - NEPHROLITHIASIS [None]
